FAERS Safety Report 16541113 (Version 2)
Quarter: 2019Q3

REPORT INFORMATION
  Report Type: Spontaneous
  Country: JP (occurrence: JP)
  Receive Date: 20190708
  Receipt Date: 20190925
  Transmission Date: 20191004
  Serious: Yes (Death, Other)
  Sender: FDA-Public Use
  Company Number: JP-BAYER-2019-123934

PATIENT
  Age: 68 Year
  Sex: Male

DRUGS (2)
  1. XOFIGO [Suspect]
     Active Substance: RADIUM RA-223 DICHLORIDE
     Indication: HORMONE-REFRACTORY PROSTATE CANCER
     Dosage: 55MBQ/KG, ONCE
     Route: 042
     Dates: start: 20170530, end: 20170530
  2. DENOSUMAB [Concomitant]
     Active Substance: DENOSUMAB

REACTIONS (4)
  - Death [Fatal]
  - Decreased appetite [Recovering/Resolving]
  - Hormone-refractory prostate cancer [None]
  - Metastasis [None]

NARRATIVE: CASE EVENT DATE: 201706
